FAERS Safety Report 8896280 (Version 1)
Quarter: 2012Q4

REPORT INFORMATION
  Report Type: Spontaneous
  Country: US (occurrence: None)
  Receive Date: 20121106
  Receipt Date: 20121106
  Transmission Date: 20130627
  Serious: Yes (Hospitalization, Disabling)
  Sender: FDA-Public Use
  Company Number: None

PATIENT
  Age: 58 Year
  Sex: Female
  Weight: 66.23 kg

DRUGS (1)
  1. CIPROFLOXACIN [Suspect]
     Indication: BLADDER INFECTION
     Dosage: 500 mg twice daily po
     Route: 048
     Dates: start: 20120524, end: 20120530

REACTIONS (20)
  - Arthralgia [None]
  - Sensation of pressure [None]
  - Muscular weakness [None]
  - Asthenia [None]
  - Dizziness [None]
  - Paraesthesia [None]
  - Burning sensation [None]
  - Paraesthesia [None]
  - Muscle twitching [None]
  - Visual impairment [None]
  - Hypoaesthesia [None]
  - Hypoaesthesia [None]
  - Hypoaesthesia [None]
  - Muscular weakness [None]
  - Muscular weakness [None]
  - Facial paresis [None]
  - Anxiety [None]
  - Asthenia [None]
  - Neuromyopathy [None]
  - Muscular weakness [None]
